FAERS Safety Report 4911995-1 (Version None)
Quarter: 2006Q1

REPORT INFORMATION
  Report Type: 
  Country: None (occurrence: None)
  Receive Date: 20060213
  Receipt Date: 20060118
  Transmission Date: 20060701
  Serious: Yes (Life-Threatening, Other)
  Sender: FDA-Public Use
  Company Number: GBR-2006-0002094

PATIENT
  Age: 74 Year
  Sex: Female

DRUGS (9)
  1. HYDROMORPHONE HCL [Suspect]
     Dosage: 16 MG, DAILY, ORAL; 12 MG, DAILY, ORAL; 8 MG, DAILY
     Route: 048
     Dates: start: 20051003, end: 20051005
  2. HYDROMORPHONE HCL [Suspect]
     Dosage: 16 MG, DAILY, ORAL; 12 MG, DAILY, ORAL; 8 MG, DAILY
     Route: 048
     Dates: start: 20050926
  3. HYDROMORPHONE HCL [Suspect]
     Dosage: 16 MG, DAILY, ORAL; 12 MG, DAILY, ORAL; 8 MG, DAILY
     Route: 048
     Dates: start: 20050929
  4. ESOMEPRAZOLE (ESOMEPRAZOLE) [Concomitant]
  5. STAGID (METFORMIN EMBONATE) [Concomitant]
  6. AVANDIA [Concomitant]
  7. ASPIRIN [Concomitant]
  8. GLYBURIDE [Concomitant]
  9. ALDACTAZINE (SPIRONOLACTONE, ALTIZIDE) [Concomitant]

REACTIONS (3)
  - COMA [None]
  - LUNG DISORDER [None]
  - RESPIRATORY DISTRESS [None]
